FAERS Safety Report 16703119 (Version 1)
Quarter: 2019Q3

REPORT INFORMATION
  Report Type: Report from Study
  Country: US (occurrence: US)
  Receive Date: 20190814
  Receipt Date: 20190814
  Transmission Date: 20191004
  Serious: Yes (Hospitalization)
  Sender: FDA-Public Use
  Company Number: US-TAIHO ONCOLOGY  INC-EU-2019-02303

PATIENT
  Age: 57 Year
  Sex: Female
  Weight: 47.22 kg

DRUGS (8)
  1. LORAZEPAM. [Concomitant]
     Active Substance: LORAZEPAM
     Dosage: NI
  2. KLOR-CON [Concomitant]
     Active Substance: POTASSIUM CHLORIDE
     Dosage: NI
  3. FLUOXETINE [Concomitant]
     Active Substance: FLUOXETINE HYDROCHLORIDE
     Dosage: NI
  4. NADOLOL. [Concomitant]
     Active Substance: NADOLOL
     Dosage: NI
  5. OMEPRAZOLE. [Concomitant]
     Active Substance: OMEPRAZOLE
     Dosage: NI
  6. MORPHINE [Concomitant]
     Active Substance: MORPHINE
     Dosage: NI
  7. LONSURF [Suspect]
     Active Substance: TIPIRACIL HYDROCHLORIDE\TRIFLURIDINE
     Indication: COLON CANCER
     Dosage: CYCLE 1
     Route: 048
     Dates: start: 20190618
  8. AVASTIN [Suspect]
     Active Substance: BEVACIZUMAB
     Indication: PRODUCT USED FOR UNKNOWN INDICATION
     Dosage: CYCLE 1
     Dates: start: 20190618

REACTIONS (4)
  - Rectal haemorrhage [Unknown]
  - Hypersomnia [Unknown]
  - Fatigue [Unknown]
  - Vomiting [Unknown]

NARRATIVE: CASE EVENT DATE: 2019
